FAERS Safety Report 10857862 (Version 1)
Quarter: 2015Q1

REPORT INFORMATION
  Report Type: Spontaneous
  Country: US (occurrence: US)
  Receive Date: 20150223
  Receipt Date: 20150223
  Transmission Date: 20150721
  Serious: No
  Sender: FDA-Public Use
  Company Number: US-TEVA-542352USA

PATIENT
  Sex: Female
  Weight: 56.75 kg

DRUGS (2)
  1. QNASL [Suspect]
     Active Substance: BECLOMETHASONE DIPROPIONATE
     Indication: SINUS OPERATION
     Route: 045
     Dates: start: 201310, end: 201312
  2. FEXOFENADINE [Concomitant]
     Active Substance: FEXOFENADINE\FEXOFENADINE HYDROCHLORIDE
     Indication: HYPERSENSITIVITY

REACTIONS (9)
  - Blood pressure increased [Recovered/Resolved]
  - Drug withdrawal syndrome [Recovered/Resolved]
  - Agitation [Recovered/Resolved]
  - Irritability [Recovered/Resolved]
  - Affective disorder [Recovered/Resolved]
  - Insomnia [Recovered/Resolved]
  - Presyncope [Recovered/Resolved]
  - Mania [Unknown]
  - Energy increased [Recovered/Resolved]
